FAERS Safety Report 7532673-9 (Version None)
Quarter: 2011Q2

REPORT INFORMATION
  Report Type: 
  Country: None (occurrence: None)
  Receive Date: 20110608
  Receipt Date: 20110530
  Transmission Date: 20111010
  Serious: Yes (Other)
  Sender: FDA-Public Use
  Company Number: A0792972A

PATIENT
  Sex: Female

DRUGS (1)
  1. PAXIL [Suspect]
     Indication: DEPRESSION
     Route: 065

REACTIONS (15)
  - ANHEDONIA [None]
  - EDUCATIONAL PROBLEM [None]
  - ILL-DEFINED DISORDER [None]
  - PRODUCT QUALITY ISSUE [None]
  - DEPRESSION [None]
  - BRAIN INJURY [None]
  - SUICIDE ATTEMPT [None]
  - EMOTIONAL DISORDER [None]
  - SCAR [None]
  - PALPITATIONS [None]
  - DECREASED ACTIVITY [None]
  - INTENTIONAL SELF-INJURY [None]
  - PSYCHIATRIC SYMPTOM [None]
  - MYOCARDIAL INFARCTION [None]
  - AUTOPHOBIA [None]
